FAERS Safety Report 20000250 (Version 3)
Quarter: 2021Q4

REPORT INFORMATION
  Report Type: Spontaneous
  Country: RU (occurrence: RU)
  Receive Date: 20211026
  Receipt Date: 20211214
  Transmission Date: 20220303
  Serious: Yes (Death, Life-Threatening, Hospitalization)
  Sender: FDA-Public Use
  Company Number: RU-ELI_LILLY_AND_COMPANY-RU202110008473

PATIENT
  Age: 64 Year
  Sex: Female

DRUGS (4)
  1. RAMUCIRUMAB [Suspect]
     Active Substance: RAMUCIRUMAB
     Indication: Colorectal cancer
     Dosage: UNK, SINGLE
     Route: 065
     Dates: start: 20211018, end: 20211018
  2. LEUCOVORIN CALCIUM [Suspect]
     Active Substance: LEUCOVORIN CALCIUM
     Indication: Colorectal cancer
     Dosage: UNK, SINGLE
     Route: 065
     Dates: start: 20211018, end: 20211018
  3. FLUOROURACIL [Suspect]
     Active Substance: FLUOROURACIL
     Indication: Colorectal cancer
     Dosage: UNK, UNKNOWN
     Route: 065
     Dates: start: 20211018, end: 20211018
  4. IRINOTECAN HYDROCHLORIDE [Suspect]
     Active Substance: IRINOTECAN HYDROCHLORIDE
     Indication: Colorectal cancer
     Dosage: UNK, UNKNOWN
     Route: 065
     Dates: start: 20211018, end: 20211018

REACTIONS (5)
  - Cachexia [Fatal]
  - Loss of consciousness [Unknown]
  - Respiratory arrest [Unknown]
  - Transaminases abnormal [Unknown]
  - Blood bilirubin abnormal [Unknown]

NARRATIVE: CASE EVENT DATE: 20211020
